FAERS Safety Report 25239753 (Version 3)
Quarter: 2025Q2

REPORT INFORMATION
  Report Type: Spontaneous
  Country: US (occurrence: US)
  Receive Date: 20250425
  Receipt Date: 20250527
  Transmission Date: 20250716
  Serious: No
  Sender: PFIZER
  Company Number: US-PFIZER INC-202500084130

PATIENT
  Age: 13 Year
  Sex: Female
  Weight: 36.83 kg

DRUGS (2)
  1. GENOTROPIN [Suspect]
     Active Substance: SOMATROPIN
     Indication: Growth hormone deficiency
     Dosage: 1.2 MG, DAILY
  2. GENOTROPIN [Suspect]
     Active Substance: SOMATROPIN
     Dosage: 1.2 MILLIGRAMS, ONCE AT NIGHT, ONE A DAY
     Dates: start: 20241220

REACTIONS (4)
  - Drug ineffective [Unknown]
  - Device leakage [Unknown]
  - Device failure [Unknown]
  - Poor quality device used [Unknown]
